FAERS Safety Report 19645115 (Version 1)
Quarter: 2021Q3

REPORT INFORMATION
  Report Type: Spontaneous
  Country: US (occurrence: US)
  Receive Date: 20210802
  Receipt Date: 20210802
  Transmission Date: 20211014
  Serious: Yes (Hospitalization)
  Sender: FDA-Public Use
  Company Number: US-AMGEN-USASP2021116475

PATIENT
  Age: 10 Year
  Sex: Male

DRUGS (1)
  1. ARANESP [Suspect]
     Active Substance: DARBEPOETIN ALFA
     Indication: ANAEMIA
     Dosage: 32 MILLIGRAM, Q2WK
     Route: 058

REACTIONS (2)
  - Unevaluable event [Unknown]
  - Haemoglobin decreased [Unknown]
